FAERS Safety Report 9995149 (Version 1)
Quarter: 2014Q1

REPORT INFORMATION
  Report Type: Spontaneous
  Country: NZ (occurrence: None)
  Receive Date: 20140307
  Receipt Date: 20140307
  Transmission Date: 20141002
  Serious: Yes (Other)
  Sender: FDA-Public Use
  Company Number: SYM-2014-17982

PATIENT
  Age: 45 Year
  Sex: Male

DRUGS (3)
  1. METRONIDAZOLE (METRONIDAZOLE) [Suspect]
     Indication: PRODUCT USED FOR UNKNOWN INDICATION
  2. CEFUROXIME [Suspect]
     Indication: PRODUCT USED FOR UNKNOWN INDICATION
  3. GELOFUSINE [Suspect]
     Indication: PRODUCT USED FOR UNKNOWN INDICATION

REACTIONS (1)
  - Anaphylactic reaction [None]
